FAERS Safety Report 22107916 (Version 1)
Quarter: 2023Q1

REPORT INFORMATION
  Report Type: Spontaneous
  Country: US (occurrence: US)
  Receive Date: 20230317
  Receipt Date: 20230317
  Transmission Date: 20230418
  Serious: No
  Sender: FDA-Public Use
  Company Number: US-BRISTOL-MYERS SQUIBB COMPANY-2023-039298

PATIENT
  Age: 70 Year
  Sex: Female
  Weight: 83.91 kg

DRUGS (2)
  1. SOTYKTU [Suspect]
     Active Substance: DEUCRAVACITINIB
     Indication: Psoriasis
     Route: 048
     Dates: start: 20221101
  2. SOTYKTU [Suspect]
     Active Substance: DEUCRAVACITINIB
     Indication: Eczema

REACTIONS (3)
  - Nasal ulcer [Unknown]
  - Otorrhoea [Unknown]
  - Dry eye [Unknown]
